FAERS Safety Report 10701696 (Version 1)
Quarter: 2015Q1

REPORT INFORMATION
  Report Type: Spontaneous
  Country: FR (occurrence: FR)
  Receive Date: 20150109
  Receipt Date: 20150109
  Transmission Date: 20150721
  Serious: Yes (Hospitalization, Congenital Anomaly)
  Sender: FDA-Public Use
  Company Number: FR-PFIZER INC-2015004045

PATIENT
  Sex: Male
  Weight: 2.91 kg

DRUGS (5)
  1. AMOXICILLIN. [Suspect]
     Active Substance: AMOXICILLIN
     Indication: STREPTOCOCCAL INFECTION
     Dosage: UNK
     Route: 064
     Dates: start: 20140808, end: 20140808
  2. ZOLOFT [Suspect]
     Active Substance: SERTRALINE HYDROCHLORIDE
     Indication: DEPRESSION
     Dosage: 25 MG, 1X/DAY
     Route: 064
     Dates: end: 20140808
  3. LEVOTHYROX [Suspect]
     Active Substance: LEVOTHYROXINE
     Indication: SECONDARY HYPOTHYROIDISM
     Dosage: 75 ?G, 1X/DAY
     Route: 064
     Dates: end: 20140808
  4. LEVOTHYROX [Suspect]
     Active Substance: LEVOTHYROXINE
     Indication: AUTOIMMUNE THYROIDITIS
  5. RHOPHYLAC [Suspect]
     Active Substance: HUMAN RHO(D) IMMUNE GLOBULIN
     Dosage: UNK
     Route: 064
     Dates: start: 20140608, end: 20140608

REACTIONS (6)
  - Maternal exposure during pregnancy [Unknown]
  - Muscle tone disorder [Recovered/Resolved]
  - Bacterial pyelonephritis [Recovering/Resolving]
  - Vesicoureteric reflux [Recovering/Resolving]
  - Neonatal respiratory distress syndrome [Recovered/Resolved]
  - Pyelocaliectasis [Recovered/Resolved]

NARRATIVE: CASE EVENT DATE: 20140808
